FAERS Safety Report 5904130-4 (Version None)
Quarter: 2008Q3

REPORT INFORMATION
  Report Type: 
  Country: None (occurrence: None)
  Receive Date: 20080919
  Receipt Date: 20080529
  Transmission Date: 20090109
  Serious: Yes (Other)
  Sender: FDA-Public Use
  Company Number: US-WYE-H04294108

PATIENT
  Age: 50 Year
  Sex: Male
  Weight: 99.88 kg

DRUGS (3)
  1. PRISTIQ [Suspect]
     Indication: DEPRESSION
     Dosage: 50 MG 1XPER 1 DAY, ORAL
     Route: 048
     Dates: start: 20080521, end: 20080528
  2. LIPITOR [Concomitant]
  3. METFORMIN HCL [Concomitant]

REACTIONS (4)
  - BLOOD PRESSURE INCREASED [None]
  - FEELING ABNORMAL [None]
  - HEADACHE [None]
  - NAUSEA [None]
